FAERS Safety Report 10250891 (Version 2)
Quarter: 2014Q2

REPORT INFORMATION
  Report Type: Report from Study
  Country: TW (occurrence: TW)
  Receive Date: 20140620
  Receipt Date: 20140620
  Transmission Date: 20141212
  Serious: Yes (Death, Hospitalization)
  Sender: FDA-Public Use
  Company Number: TW-ABBVIE-14P-153-1226945-00

PATIENT
  Age: 76 Year
  Sex: Female

DRUGS (1)
  1. HUMIRA [Suspect]
     Indication: RHEUMATOID ARTHRITIS
     Route: 058
     Dates: start: 20130823, end: 20140307

REACTIONS (9)
  - Renal failure acute [Fatal]
  - Influenza [Fatal]
  - Septic shock [Fatal]
  - Pneumonia [Not Recovered/Not Resolved]
  - Endocarditis [Not Recovered/Not Resolved]
  - Meningitis [Not Recovered/Not Resolved]
  - Nasopharyngitis [Unknown]
  - Pyrexia [Unknown]
  - Cough [Unknown]
